FAERS Safety Report 13876590 (Version 1)
Quarter: 2017Q3

REPORT INFORMATION
  Report Type: Spontaneous
  Country: US (occurrence: US)
  Receive Date: 20170817
  Receipt Date: 20170817
  Transmission Date: 20171127
  Serious: Yes (Other)
  Sender: FDA-Public Use
  Company Number: US-AMGEN-USASP2017122345

PATIENT
  Sex: Female

DRUGS (1)
  1. ENBREL [Suspect]
     Active Substance: ETANERCEPT
     Indication: RHEUMATOID ARTHRITIS
     Dosage: UNK
     Route: 065
     Dates: end: 20170612

REACTIONS (9)
  - Rheumatoid factor increased [Unknown]
  - C-reactive protein abnormal [Unknown]
  - Erythema [Unknown]
  - Monocyte count abnormal [Unknown]
  - Oropharyngeal pain [Unknown]
  - Antibody test abnormal [Unknown]
  - Rash [Unknown]
  - Rheumatoid arthritis [Unknown]
  - Globulins increased [Unknown]
